FAERS Safety Report 6814628-2 (Version None)
Quarter: 2010Q3

REPORT INFORMATION
  Report Type: 
  Country: None (occurrence: None)
  Receive Date: 20100702
  Receipt Date: 20100623
  Transmission Date: 20110219
  Serious: Yes (Other)
  Sender: FDA-Public Use
  Company Number: JP-PFIZER INC-2010078533

PATIENT
  Age: 66 Year
  Sex: Female

DRUGS (2)
  1. ZITHROMAC SR [Suspect]
     Dosage: 2 G, SINGLE
     Route: 048
     Dates: start: 20100622, end: 20100622
  2. INSULIN [Concomitant]

REACTIONS (1)
  - HYPERGLYCAEMIA [None]
